FAERS Safety Report 20738898 (Version 2)
Quarter: 2022Q2

REPORT INFORMATION
  Report Type: Spontaneous
  Country: CA (occurrence: None)
  Receive Date: 20220422
  Receipt Date: 20220427
  Transmission Date: 20220721
  Serious: Yes (Life-Threatening)
  Sender: FDA-Public Use
  Company Number: 2022A155611

PATIENT
  Age: 58 Year
  Sex: Male

DRUGS (1)
  1. DAPAGLIFLOZIN [Suspect]
     Active Substance: DAPAGLIFLOZIN
     Indication: Diabetes mellitus
     Dosage: ONCE5.0MG UNKNOWN
     Route: 048
     Dates: start: 20170717

REACTIONS (2)
  - Decreased appetite [Not Recovered/Not Resolved]
  - Gastrointestinal neoplasm [Unknown]

NARRATIVE: CASE EVENT DATE: 20210901
